FAERS Safety Report 9824224 (Version 2)
Quarter: 2014Q1

REPORT INFORMATION
  Report Type: Spontaneous
  Country: DZ (occurrence: DZ)
  Receive Date: 20140116
  Receipt Date: 20140116
  Transmission Date: 20141002
  Serious: Yes (Hospitalization)
  Sender: FDA-Public Use
  Company Number: DZ-ROCHE-1320361

PATIENT
  Sex: Male

DRUGS (1)
  1. AVASTIN [Suspect]
     Indication: COLORECTAL CANCER
     Route: 042
     Dates: start: 2013, end: 2013

REACTIONS (3)
  - Haemorrhage [Recovered/Resolved]
  - Skin necrosis [Recovered/Resolved]
  - Intentional drug misuse [Unknown]
